FAERS Safety Report 7466975-1 (Version None)
Quarter: 2011Q2

REPORT INFORMATION
  Report Type: 
  Country: None (occurrence: None)
  Receive Date: 20110509
  Receipt Date: 20110418
  Transmission Date: 20111010
  Serious: Yes (Hospitalization, Other)
  Sender: FDA-Public Use
  Company Number: US-BAYER-2010-002110

PATIENT
  Age: 44 Year
  Sex: Female
  Weight: 78.005 kg

DRUGS (6)
  1. YAZ [Suspect]
     Indication: PRODUCT USED FOR UNKNOWN INDICATION
     Dosage: UNK
     Route: 048
     Dates: start: 20070301
  2. CLARITIN-D [Concomitant]
     Indication: PRODUCT USED FOR UNKNOWN INDICATION
  3. ENALAPRIL MALEATE [Concomitant]
     Indication: PRODUCT USED FOR UNKNOWN INDICATION
     Dosage: 2.5 MG, UNK
  4. OMEPRAZOLE [Concomitant]
     Indication: PRODUCT USED FOR UNKNOWN INDICATION
     Dosage: 20 MG, QD
  5. IBUPROFEN [Concomitant]
     Indication: PAIN
     Dosage: 800 MG, PRN
  6. DROSPIRENONE AND ETHINYL ESTRADIOL [Suspect]
     Indication: PRODUCT USED FOR UNKNOWN INDICATION
     Dosage: UNK
     Route: 048
     Dates: start: 20080901, end: 20081124

REACTIONS (11)
  - DIZZINESS [None]
  - DYSPNOEA [None]
  - PULMONARY EMBOLISM [None]
  - CHEST PAIN [None]
  - LOSS OF CONSCIOUSNESS [None]
  - ASTHENIA [None]
  - ANXIETY [None]
  - DEPRESSION [None]
  - PAIN IN EXTREMITY [None]
  - THROMBOSIS [None]
  - MUSCLE SPASMS [None]
